FAERS Safety Report 8844063 (Version 3)
Quarter: 2013Q2

REPORT INFORMATION
  Report Type: Report from Study
  Country: JP (occurrence: JP)
  Receive Date: 20121017
  Receipt Date: 20130408
  Transmission Date: 20140414
  Serious: Yes (Other)
  Sender: FDA-Public Use
  Company Number: JP-009507513-1210JPN004320

PATIENT
  Age: 57 Year
  Sex: Female
  Weight: 58 kg

DRUGS (11)
  1. PEGINTRON [Suspect]
     Indication: CHRONIC HEPATITIS C
     Dosage: 1.39 MICROGRAM PER KILOGRAM, QW
     Route: 058
     Dates: start: 20120627
  2. REBETOL [Suspect]
     Indication: CHRONIC HEPATITIS C
     Dosage: 600 MG, QD
     Route: 048
     Dates: start: 20120627, end: 20120725
  3. REBETOL [Suspect]
     Dosage: 400 MG, QD
     Route: 048
     Dates: start: 20120725, end: 20120814
  4. REBETOL [Suspect]
     Dosage: 200 MG, QD
     Route: 048
     Dates: start: 20120815, end: 20121002
  5. REBETOL [Suspect]
     Dosage: 100 MG, QD
     Route: 048
     Dates: start: 20121003, end: 20121030
  6. REBETOL [Suspect]
     Dosage: 200 MG, QD
     Route: 048
     Dates: start: 20121031, end: 20121211
  7. TELAVIC [Suspect]
     Indication: CHRONIC HEPATITIS C
     Dosage: 1500 MILLIGRAMS, QD, CUMULATIVE DOSE 13500 MG
     Route: 048
     Dates: start: 20120627, end: 20120828
  8. TELAVIC [Suspect]
     Dosage: 1000 MILLIGRAMS, QD, CUMULATIVE DOSE 13500 MG
     Route: 048
     Dates: start: 20120829, end: 20120918
  9. LOXONIN [Concomitant]
     Dosage: 60 MG PER DAY , PRN, FORMULATION:  POR, DAILY DOSE UNKNOWN
     Route: 048
     Dates: start: 20120627, end: 20120701
  10. REFLEX [Concomitant]
     Indication: PROPHYLAXIS
     Dosage: 7.5 MG, QD,  FORMULATION: POR
     Route: 048
     Dates: start: 20120709, end: 20121002
  11. TAKEPRON [Concomitant]
     Indication: PROPHYLAXIS
     Dosage: 15 MG, QD,  FORMULATION: POR
     Route: 048
     Dates: start: 20120905, end: 20121009

REACTIONS (2)
  - Drug eruption [Recovering/Resolving]
  - Drug eruption [Recovered/Resolved]
